FAERS Safety Report 6236485-8 (Version None)
Quarter: 2009Q2

REPORT INFORMATION
  Report Type: 
  Country: None (occurrence: None)
  Receive Date: 20090619
  Receipt Date: 20090608
  Transmission Date: 20091009
  Serious: Yes (Hospitalization, Congenital Anomaly)
  Sender: FDA-Public Use
  Company Number: A0662857A

PATIENT
  Sex: Male
  Weight: 3.3 kg

DRUGS (5)
  1. PAXIL [Suspect]
     Indication: DEPRESSION
     Dates: start: 19920101, end: 19930101
  2. AMOXICILLIN [Concomitant]
     Dates: start: 19930825
  3. AMOXICILLIN [Concomitant]
     Dates: start: 19930209
  4. VITAMIN TAB [Concomitant]
  5. ZOVIRAX [Concomitant]

REACTIONS (6)
  - ARTERIAL DISORDER [None]
  - ASTHMA [None]
  - CARDIAC MURMUR [None]
  - CONGENITAL CARDIOVASCULAR ANOMALY [None]
  - DRUG EXPOSURE DURING PREGNANCY [None]
  - RIGHT AORTIC ARCH [None]
